FAERS Safety Report 18182303 (Version 2)
Quarter: 2020Q3

REPORT INFORMATION
  Report Type: Spontaneous
  Country: DE (occurrence: DE)
  Receive Date: 20200821
  Receipt Date: 20200924
  Transmission Date: 20201103
  Serious: Yes (Other)
  Sender: FDA-Public Use
  Company Number: NVSC2020DE230445

PATIENT
  Age: 57 Year
  Sex: Female

DRUGS (7)
  1. VINCRISTINE [Suspect]
     Active Substance: VINCRISTINE
     Indication: HISTIOCYTIC SARCOMA
     Dosage: 3 COURSES
     Route: 065
  2. RITUXIMAB. [Suspect]
     Active Substance: RITUXIMAB
     Indication: HISTIOCYTIC SARCOMA
     Dosage: 3 COURSES
     Route: 065
  3. PREDNISONE. [Suspect]
     Active Substance: PREDNISONE
     Indication: HISTIOCYTIC SARCOMA
     Dosage: 3 COURSES
     Route: 065
  4. DOXORUBICIN [Suspect]
     Active Substance: DOXORUBICIN
     Indication: HISTIOCYTIC SARCOMA
     Dosage: 3 COURSES
     Route: 065
  5. CYCLOPHOSPHAMIDE. [Suspect]
     Active Substance: CYCLOPHOSPHAMIDE
     Indication: HISTIOCYTIC SARCOMA
     Dosage: 3 COURSES
     Route: 065
  6. ETOPOSIDE. [Suspect]
     Active Substance: ETOPOSIDE
     Indication: HISTIOCYTIC SARCOMA
     Dosage: 3 COURSES
     Route: 065
  7. DEXAMETHASONE. [Concomitant]
     Active Substance: DEXAMETHASONE
     Indication: HAEMOPHAGOCYTIC LYMPHOHISTIOCYTOSIS
     Dosage: 10 MG/M2
     Route: 065

REACTIONS (2)
  - Histiocytic sarcoma [Unknown]
  - Product use in unapproved indication [Unknown]
